FAERS Safety Report 6830726-1 (Version None)
Quarter: 2010Q3

REPORT INFORMATION
  Report Type: 
  Country: None (occurrence: None)
  Receive Date: 20100706
  Receipt Date: 20100621
  Transmission Date: 20110219
  Serious: Yes (Other)
  Sender: FDA-Public Use
  Company Number: AUR-APL-2010-01633

PATIENT
  Age: 57 Year
  Sex: Female

DRUGS (1)
  1. ALENDRONATE SODIUM [Suspect]

REACTIONS (5)
  - ARTHRALGIA [None]
  - FALL [None]
  - FEMUR FRACTURE [None]
  - GROIN PAIN [None]
  - PAIN IN EXTREMITY [None]
